FAERS Safety Report 8107362-2 (Version None)
Quarter: 2012Q1

REPORT INFORMATION
  Report Type: 
  Country: None (occurrence: None)
  Receive Date: 20120202
  Receipt Date: 20120125
  Transmission Date: 20120608
  Serious: Yes (Hospitalization)
  Sender: FDA-Public Use
  Company Number: FR-PFIZER INC-2012020062

PATIENT
  Age: 36 Year
  Sex: Female

DRUGS (6)
  1. SULFASALAZINE [Suspect]
     Dosage: 2 DF, 2X/DAY
     Route: 048
     Dates: start: 20110615, end: 20110624
  2. ACETAMINOPHEN AND TRAMADOL HCL [Concomitant]
     Dosage: UNK
     Route: 048
  3. CALCIUM CARBONATE [Concomitant]
     Dosage: UNK
     Route: 048
  4. NEXIUM [Concomitant]
     Dosage: UNK
     Route: 048
  5. PLAQUENIL [Concomitant]
     Dosage: UNK
     Dates: start: 20100501, end: 20110615
  6. PREDNISONE TAB [Concomitant]
     Dosage: 15 MG, 1X/DAY
     Route: 048
     Dates: start: 20100501

REACTIONS (2)
  - HEADACHE [None]
  - RASH MACULO-PAPULAR [None]
